FAERS Safety Report 7529038-2 (Version None)
Quarter: 2011Q2

REPORT INFORMATION
  Report Type: 
  Country: None (occurrence: None)
  Receive Date: 20110607
  Receipt Date: 20110527
  Transmission Date: 20111010
  Serious: Yes (Hospitalization)
  Sender: FDA-Public Use
  Company Number: US-SANOFI-AVENTIS-2011SA034089

PATIENT
  Age: 52 Year
  Sex: Male

DRUGS (5)
  1. LANTUS [Suspect]
     Indication: TYPE 2 DIABETES MELLITUS
     Dosage: DOSE:40 UNIT(S)
     Route: 058
  2. LANTUS [Suspect]
     Dosage: DOSE:20 UNIT(S)
     Route: 058
  3. ANTIHYPERTENSIVES [Concomitant]
  4. NOVOLOG [Concomitant]
  5. CHOLESTEROL- AND TRIGLYCERIDE REDUCERS [Concomitant]

REACTIONS (6)
  - FLUID RETENTION [None]
  - CARDIAC FAILURE CONGESTIVE [None]
  - VOMITING [None]
  - NAUSEA [None]
  - DYSPNOEA [None]
  - WEIGHT INCREASED [None]
